FAERS Safety Report 7060824-1 (Version None)
Quarter: 2010Q4

REPORT INFORMATION
  Report Type: 
  Country: None (occurrence: None)
  Receive Date: 20101025
  Receipt Date: 20101018
  Transmission Date: 20110411
  Serious: Yes (Hospitalization)
  Sender: FDA-Public Use
  Company Number: US-ABBOTT-10P-163-0671341-00

PATIENT
  Sex: Female
  Weight: 72.64 kg

DRUGS (8)
  1. HUMIRA [Suspect]
     Indication: PSORIASIS
     Dates: start: 20050101, end: 20100801
  2. ENBREL [Suspect]
     Indication: PSORIASIS
     Dates: start: 20100905, end: 20100905
  3. OMEPRAZOLE [Concomitant]
     Indication: GASTROOESOPHAGEAL REFLUX DISEASE
  4. IRON [Concomitant]
     Indication: ANAEMIA
  5. CALCIUM [Concomitant]
     Indication: MINERAL SUPPLEMENTATION
  6. PAROXETINE HCL [Concomitant]
     Indication: ANXIETY
  7. SPIRONOLACTONE [Concomitant]
     Indication: FLUID RETENTION
  8. PREDNISONE [Concomitant]
     Indication: HYPERSENSITIVITY

REACTIONS (7)
  - ABDOMINAL DISTENSION [None]
  - ABDOMINAL PAIN [None]
  - COLITIS [None]
  - DRUG INEFFECTIVE [None]
  - HEADACHE [None]
  - PAIN [None]
  - PYREXIA [None]
